FAERS Safety Report 20583129 (Version 1)
Quarter: 2022Q1

REPORT INFORMATION
  Report Type: Spontaneous
  Country: CN (occurrence: CN)
  Receive Date: 20220311
  Receipt Date: 20220311
  Transmission Date: 20220424
  Serious: Yes (Hospitalization)
  Sender: FDA-Public Use
  Company Number: CN-BAXTER-2022BAX005131

PATIENT
  Age: 23 Year
  Sex: Female
  Weight: 62 kg

DRUGS (12)
  1. CYCLOPHOSPHAMIDE [Suspect]
     Active Substance: CYCLOPHOSPHAMIDE
     Indication: Acute lymphocytic leukaemia
     Dosage: CYCLOPHOSPHAMIDE FOR INJECTION (400 MG) + 0.9% SODIUM CHLORIDE INJECTION (250 ML)
     Route: 041
     Dates: start: 20211225
  2. CYCLOPHOSPHAMIDE [Suspect]
     Active Substance: CYCLOPHOSPHAMIDE
     Dosage: DOSE REINTRODUCED: CYCLOPHOSPHAMIDE FOR INJECTION +0.9% SODIUM CHLORIDE INJECTION
     Route: 041
  3. SODIUM CHLORIDE [Suspect]
     Active Substance: SODIUM CHLORIDE
     Indication: Medication dilution
     Dosage: CYCLOPHOSPHAMIDE FOR INJECTION (400 MG) + 0.9% SODIUM CHLORIDE INJECTION (250 ML)
     Route: 041
     Dates: start: 20211225
  4. SODIUM CHLORIDE [Suspect]
     Active Substance: SODIUM CHLORIDE
     Dosage: SODIUM CHLORIDE INJECTION (45 ML) + CYTARABINE HYDROCHLORIDE FOR INJECTION (50 MG), ONCE
     Route: 037
     Dates: start: 20211225
  5. SODIUM CHLORIDE [Suspect]
     Active Substance: SODIUM CHLORIDE
     Dosage: VINCRISTINE SULFATE FOR INJECTION (2 MG) + SODIUM CHLORIDE INJECTION (180 ML)
     Route: 042
     Dates: start: 20211225
  6. SODIUM CHLORIDE [Suspect]
     Active Substance: SODIUM CHLORIDE
     Dosage: DOSE REINTRODUCED: 0.9% SODIUM CHLORIDE INJECTION + CYCLOPHOSPHAMIDE FOR INJECTION
     Route: 041
  7. SODIUM CHLORIDE [Suspect]
     Active Substance: SODIUM CHLORIDE
     Dosage: DOSE REINTRODUCED: SODIUM CHLORIDE INJECTION + CYTARABINE HYDROCHLORIDE FOR INJECTION
     Route: 037
  8. SODIUM CHLORIDE [Suspect]
     Active Substance: SODIUM CHLORIDE
     Dosage: DOSE REINTRODUCED: SODIUM CHLORIDE INJECTION + VINCRISTINE SULFATE FOR INJECTION
     Route: 042
  9. CYTARABINE HYDROCHLORIDE [Suspect]
     Active Substance: CYTARABINE HYDROCHLORIDE
     Indication: Acute lymphocytic leukaemia
     Dosage: SODIUM CHLORIDE INJECTION (45 ML) + CYTARABINE HYDROCHLORIDE FOR INJECTION (50 MG), ONCE
     Route: 037
     Dates: start: 20211225
  10. CYTARABINE HYDROCHLORIDE [Suspect]
     Active Substance: CYTARABINE HYDROCHLORIDE
     Dosage: DOSE REINTRODUCED: CYTARABINE HYDROCHLORIDE FOR INJECTION + SODIUM CHLORIDE INJECTION
     Route: 037
  11. VINCRISTINE SULFATE [Suspect]
     Active Substance: VINCRISTINE SULFATE
     Indication: Acute lymphocytic leukaemia
     Dosage: VINCRISTINE SULFATE FOR INJECTION (2 MG) + SODIUM CHLORIDE INJECTION (180 ML)
     Route: 042
     Dates: start: 20211225
  12. VINCRISTINE SULFATE [Suspect]
     Active Substance: VINCRISTINE SULFATE
     Dosage: DOSE REINTRODUCED: VINCRISTINE SULFATE FOR INJECTION +SODIUM CHLORIDE INJECTION
     Route: 042

REACTIONS (1)
  - Myelosuppression [Recovering/Resolving]

NARRATIVE: CASE EVENT DATE: 20220122
